FAERS Safety Report 11112212 (Version 1)
Quarter: 2015Q2

REPORT INFORMATION
  Report Type: Spontaneous
  Country: US (occurrence: None)
  Receive Date: 20150513
  Receipt Date: 20150513
  Transmission Date: 20150821
  Serious: No
  Sender: FDA-Public Use
  Company Number: None

PATIENT
  Age: 60 Year
  Sex: Male
  Weight: 68.04 kg

DRUGS (2)
  1. OXYCODONE-ACETAMINOPHEN [Suspect]
     Active Substance: ACETAMINOPHEN\OXYCODONE HYDROCHLORIDE
     Indication: ANKLE FRACTURE
     Route: 048
     Dates: start: 20150511, end: 20150512
  2. PLAVIX [Concomitant]
     Active Substance: CLOPIDOGREL BISULFATE

REACTIONS (6)
  - Product quality issue [None]
  - Nausea [None]
  - Incorrect dose administered [None]
  - Product substitution issue [None]
  - Dry mouth [None]
  - Drug ineffective [None]

NARRATIVE: CASE EVENT DATE: 20150511
